FAERS Safety Report 6809419-2 (Version None)
Quarter: 2010Q2

REPORT INFORMATION
  Report Type: 
  Country: None (occurrence: None)
  Receive Date: 20100630
  Receipt Date: 20100625
  Transmission Date: 20101027
  Serious: Yes (Death)
  Sender: FDA-Public Use
  Company Number: DE-CELGENEUS-062-50794-10062816

PATIENT
  Sex: Female

DRUGS (7)
  1. VIDAZA [Suspect]
     Route: 058
     Dates: start: 20090301, end: 20091001
  2. RED BLOOD CELLS [Concomitant]
     Indication: DRUG USE FOR UNKNOWN INDICATION
     Route: 051
  3. ESA [Concomitant]
     Indication: DRUG USE FOR UNKNOWN INDICATION
     Route: 065
  4. EXJADE [Concomitant]
     Route: 065
  5. ANTIBIOTICS [Concomitant]
     Indication: PROPHYLAXIS
     Route: 065
  6. ANTIMYCOTICS [Concomitant]
     Indication: PROPHYLAXIS
     Route: 065
  7. CORTICOSTEROIDS [Concomitant]
     Indication: DRUG USE FOR UNKNOWN INDICATION
     Route: 065

REACTIONS (4)
  - DEATH [None]
  - DISEASE PROGRESSION [None]
  - NEUTROPENIA [None]
  - THROMBOCYTOPENIA [None]
